FAERS Safety Report 20375023 (Version 2)
Quarter: 2022Q1

REPORT INFORMATION
  Report Type: Spontaneous
  Country: BE (occurrence: BE)
  Receive Date: 20220125
  Receipt Date: 20220131
  Transmission Date: 20220424
  Serious: Yes (Other)
  Sender: FDA-Public Use
  Company Number: BE-BEH-2022140988

PATIENT
  Age: 16 Month

DRUGS (1)
  1. PRIVIGEN [Suspect]
     Active Substance: HUMAN IMMUNOGLOBULIN G
     Indication: Thrombocytopenia
     Dosage: 1 GRAM PER KILOGRAM
     Route: 042

REACTIONS (6)
  - Antibody test positive [Unknown]
  - Thrombotic microangiopathy [Unknown]
  - Therapy non-responder [Unknown]
  - Thrombotic thrombocytopenic purpura [Unknown]
  - No adverse event [Unknown]
  - Off label use [Unknown]
